FAERS Safety Report 15742744 (Version 1)
Quarter: 2018Q4

REPORT INFORMATION
  Report Type: Spontaneous
  Country: FR (occurrence: FR)
  Receive Date: 20181219
  Receipt Date: 20181219
  Transmission Date: 20190205
  Serious: Yes (Life-Threatening, Hospitalization, Other)
  Sender: FDA-Public Use
  Company Number: FR-MYLANLABS-2018M1094477

PATIENT
  Age: 64 Year
  Sex: Female

DRUGS (12)
  1. OLANZAPINE SANDOZ [Suspect]
     Active Substance: OLANZAPINE
     Indication: MAJOR DEPRESSION
     Dosage: 1 DOSAGE FORM, QD
     Route: 048
     Dates: start: 20160422, end: 20180423
  2. ESTRADIOL MYLAN [Suspect]
     Active Substance: ESTRADIOL
     Indication: HYSTERECTOMY
  3. OLANZAPINE SANDOZ [Suspect]
     Active Substance: OLANZAPINE
     Dosage: 1 UNK
     Route: 048
     Dates: start: 20160413, end: 20160415
  4. SEROPLEX [Concomitant]
     Active Substance: ESCITALOPRAM OXALATE
     Dosage: 1 UNK
     Dates: start: 20160413, end: 20160415
  5. SEROPLEX [Concomitant]
     Active Substance: ESCITALOPRAM OXALATE
     Dosage: 1 UNK
     Route: 048
  6. LEPTICUR [Concomitant]
     Active Substance: TROPATEPINE HYDROCHLORIDE
     Indication: PRODUCT USED FOR UNKNOWN INDICATION
     Dosage: UNK
  7. ANAFRANIL [Concomitant]
     Active Substance: CLOMIPRAMINE HYDROCHLORIDE
     Indication: PRODUCT USED FOR UNKNOWN INDICATION
     Dosage: 75 MILLIGRAM
     Route: 048
     Dates: start: 20160415, end: 20160422
  8. SEROPLEX [Concomitant]
     Active Substance: ESCITALOPRAM OXALATE
     Indication: MENTAL DISORDER
     Dosage: 1 DOSAGE FORM, QD
     Dates: start: 20160422, end: 20160423
  9. LEXOMIL [Concomitant]
     Active Substance: BROMAZEPAM
     Indication: PRODUCT USED FOR UNKNOWN INDICATION
     Dosage: 1 DOSAGE FORM, QD
     Route: 048
  10. VALIUM [Concomitant]
     Active Substance: DIAZEPAM
     Indication: PRODUCT USED FOR UNKNOWN INDICATION
     Dosage: UNK
  11. SOLIAN [Concomitant]
     Active Substance: AMISULPRIDE
     Indication: PRODUCT USED FOR UNKNOWN INDICATION
     Dosage: 3 DOSAGE FORM, QD
     Route: 048
     Dates: start: 20160415, end: 20160422
  12. ESTRADIOL MYLAN [Suspect]
     Active Substance: ESTRADIOL
     Indication: SALPINGO-OOPHORECTOMY
     Dosage: UNK
     Dates: start: 2005, end: 2016

REACTIONS (11)
  - Immobile [Unknown]
  - Depression [Unknown]
  - Product used for unknown indication [Unknown]
  - Phlebitis [Unknown]
  - Dyspnoea [Unknown]
  - Hypotension [Unknown]
  - Cardiogenic shock [Unknown]
  - Right ventricular dilatation [Unknown]
  - Ventricular dyskinesia [Unknown]
  - Cor pulmonale acute [Unknown]
  - Pulmonary embolism [Recovered/Resolved]

NARRATIVE: CASE EVENT DATE: 2016
